FAERS Safety Report 23713839 (Version 2)
Quarter: 2024Q4

REPORT INFORMATION
  Report Type: Report from Study
  Country: ES (occurrence: ES)
  Receive Date: 20240405
  Receipt Date: 20241010
  Transmission Date: 20250115
  Serious: Yes (Other)
  Sender: AKCEA THERAPEUTICS
  Company Number: ES-AKCEA THERAPEUTICS, INC.-2024IS003090

PATIENT

DRUGS (5)
  1. TEGSEDI [Suspect]
     Active Substance: INOTERSEN SODIUM
     Indication: Hereditary neuropathic amyloidosis
     Dosage: 284 MILLIGRAM, QOW (EVERY 15 DAYS)
     Route: 058
     Dates: start: 20210902
  2. TEGSEDI [Suspect]
     Active Substance: INOTERSEN SODIUM
     Dosage: 284 MILLIGRAM, QW
     Route: 058
     Dates: end: 20210820
  3. TEGSEDI [Suspect]
     Active Substance: INOTERSEN SODIUM
     Dosage: 284 MILLIGRAM, QW (ONCE IN A WEEK )
     Route: 058
     Dates: start: 20201117, end: 20210513
  4. TEGSEDI [Suspect]
     Active Substance: INOTERSEN SODIUM
     Dosage: 284 MILLIGRAM, QW
     Route: 058
     Dates: start: 202010
  5. RISPERIDONE [Concomitant]
     Active Substance: RISPERIDONE
     Indication: Product used for unknown indication
     Dosage: UNK (FOR THREE DAYS)
     Route: 065
     Dates: start: 2022

REACTIONS (1)
  - Hypokalaemia [Unknown]

NARRATIVE: CASE EVENT DATE: 20211228
